FAERS Safety Report 9210359 (Version 1)
Quarter: 2013Q2

REPORT INFORMATION
  Report Type: Report from Study
  Country: JP (occurrence: JP)
  Receive Date: 20130404
  Receipt Date: 20130404
  Transmission Date: 20140414
  Serious: Yes (Hospitalization, Other)
  Sender: FDA-Public Use
  Company Number: PHHY2012JP111942

PATIENT
  Age: 77 Year
  Sex: Female
  Weight: 55 kg

DRUGS (13)
  1. EXJADE [Suspect]
     Indication: APLASTIC ANAEMIA
     Dosage: 125 MG, UNK
     Route: 048
     Dates: start: 20110128, end: 20110726
  2. EXJADE [Suspect]
     Dosage: 125 MG, UNK
     Route: 048
     Dates: start: 20110727, end: 20111221
  3. DESFERAL [Concomitant]
     Indication: IRON OVERLOAD
     Dosage: 500 MG, UNK
     Route: 030
     Dates: start: 20100426, end: 20101122
  4. NEORAL [Concomitant]
     Indication: APLASTIC ANAEMIA
     Dosage: 100 MG, UNK
     Route: 048
     Dates: start: 20110727, end: 20111221
  5. ADONA [Concomitant]
     Indication: APLASTIC ANAEMIA
     Dosage: 30 MG, UNK
     Route: 048
     Dates: start: 20110727, end: 20111221
  6. ACINON [Concomitant]
     Indication: PROPHYLAXIS
     Dosage: 300 MG, UNK
     Route: 048
     Dates: start: 20110727, end: 20111221
  7. MUCOSTA [Concomitant]
     Indication: PROPHYLAXIS
     Dosage: 300 MG, UNK
     Route: 048
     Dates: start: 20110727, end: 20111221
  8. CONIEL [Concomitant]
     Dosage: 8 MG, UNK
     Route: 048
     Dates: start: 20110727, end: 20111221
  9. ITOROL [Concomitant]
     Dosage: 40 MG, UNK
     Route: 048
     Dates: start: 20110727, end: 20111221
  10. LASIX [Concomitant]
     Dosage: 40 MG, UNK
     Route: 048
     Dates: start: 20110727, end: 20111221
  11. FUNGIZONE [Concomitant]
     Indication: APLASTIC ANAEMIA
     Dosage: 40 MG, UNK
     Route: 048
     Dates: start: 20110727, end: 20111221
  12. POLYMYXIN B [Concomitant]
     Indication: APLASTIC ANAEMIA
     Dosage: UNK UKN, UNK
     Route: 048
     Dates: start: 20110727, end: 20111221
  13. BAYASPIRIN [Concomitant]
     Dosage: 100 MG, UNK
     Route: 048
     Dates: start: 20110727, end: 20111221

REACTIONS (2)
  - Aplastic anaemia [Not Recovered/Not Resolved]
  - Serum ferritin increased [Unknown]
